FAERS Safety Report 8003373-6 (Version None)
Quarter: 2011Q4

REPORT INFORMATION
  Report Type: 
  Country: None (occurrence: None)
  Receive Date: 20111222
  Receipt Date: 20111219
  Transmission Date: 20120403
  Serious: Yes (Death)
  Sender: FDA-Public Use
  Company Number: US-MEDIMMUNE-MEDI-0014199

PATIENT
  Sex: Female
  Weight: 4.131 kg

DRUGS (5)
  1. MIRALAX [Concomitant]
  2. SYNAGIS [Suspect]
     Route: 030
     Dates: start: 20111005, end: 20111130
  3. FLU VACCINE [Concomitant]
     Dates: start: 20110907
  4. PREVNAR [Concomitant]
     Dates: start: 20111212
  5. HIB [Concomitant]
     Dates: start: 20111212

REACTIONS (1)
  - CARDIAC ARREST [None]
